FAERS Safety Report 9496605 (Version 1)
Quarter: 2013Q3

REPORT INFORMATION
  Report Type: Spontaneous
  Country: US (occurrence: US)
  Receive Date: 20130904
  Receipt Date: 20130904
  Transmission Date: 20140515
  Serious: Yes (Hospitalization)
  Sender: FDA-Public Use
  Company Number: US-ASTELLAS-2013US009093

PATIENT
  Age: 47 Year
  Sex: Male

DRUGS (3)
  1. XTANDI [Suspect]
     Indication: PROSTATE CANCER
     Dosage: 160 MG, UID/QD
     Route: 048
     Dates: start: 20130411
  2. XTANDI [Suspect]
     Dosage: 120 MG, UID/QD
     Route: 048
     Dates: start: 201308
  3. XTANDI [Suspect]
     Dosage: 160 MG, UID/QD
     Route: 048
     Dates: start: 201308

REACTIONS (1)
  - Nausea [Unknown]
